FAERS Safety Report 11244908 (Version 2)
Quarter: 2015Q3

REPORT INFORMATION
  Report Type: Spontaneous
  Country: IT (occurrence: IT)
  Receive Date: 20150707
  Receipt Date: 20150819
  Transmission Date: 20151125
  Serious: Yes (Other)
  Sender: FDA-Public Use
  Company Number: IT-ACTAVIS-2015-13599

PATIENT
  Age: 70 Year
  Sex: Male
  Weight: 66 kg

DRUGS (16)
  1. IRINOTECAN (UNKNOWN) [Suspect]
     Active Substance: IRINOTECAN
     Indication: ADENOCARCINOMA GASTRIC
     Dosage: 220 MG, CYCLICAL
     Route: 042
     Dates: start: 20150210, end: 20150617
  2. FLUOROURACIL. [Suspect]
     Active Substance: FLUOROURACIL
     Indication: ADENOCARCINOMA GASTRIC
     Dosage: 500 MG, CYCLICAL
     Route: 040
     Dates: start: 20150210, end: 20150617
  3. MINITRAN [Concomitant]
     Active Substance: NITROGLYCERIN
     Indication: PRODUCT USED FOR UNKNOWN INDICATION
     Dosage: 10 MG, UNKNOWN
     Route: 062
  4. CORLENTOR [Concomitant]
     Active Substance: IVABRADINE HYDROCHLORIDE
     Indication: PRODUCT USED FOR UNKNOWN INDICATION
     Dosage: 5 MG, UNKNOWN
     Route: 048
  5. FLUOROURACIL. [Suspect]
     Active Substance: FLUOROURACIL
     Dosage: 700 MG, CYCLICAL, DOSE DECREASED
     Route: 040
     Dates: start: 20150210, end: 20150617
  6. FLUOROURACIL. [Suspect]
     Active Substance: FLUOROURACIL
     Dosage: 4220 MG, CYCLICAL, DOSE DECREASED
     Route: 041
     Dates: start: 20150210, end: 20150617
  7. LANTUS [Concomitant]
     Active Substance: INSULIN GLARGINE
     Indication: PRODUCT USED FOR UNKNOWN INDICATION
     Dosage: UNK UNK, UNKNOWN
     Route: 065
  8. LEVOFOLINIC ACID [Concomitant]
     Active Substance: LEVOLEUCOVORIN
     Indication: PRODUCT USED FOR UNKNOWN INDICATION
     Dosage: 250 MG, UNKNOWN
     Route: 042
     Dates: start: 20150210, end: 20150617
  9. IRINOTECAN (UNKNOWN) [Suspect]
     Active Substance: IRINOTECAN
     Dosage: 300 MG, CYCLICAL, DOSE DECREASED
     Route: 042
     Dates: start: 20150210, end: 20150617
  10. PLAVIX [Concomitant]
     Active Substance: CLOPIDOGREL BISULFATE
     Indication: PRODUCT USED FOR UNKNOWN INDICATION
     Dosage: 75 MG, UNKNOWN
     Route: 048
  11. LEVOFOLINIC ACID [Concomitant]
     Active Substance: LEVOLEUCOVORIN
     Dosage: 350 MG, UNKNOWN, DOSE DECREASED
     Route: 042
     Dates: start: 20150210, end: 20150617
  12. FLUOROURACIL. [Suspect]
     Active Substance: FLUOROURACIL
     Dosage: 510 MG, CYCLICAL, DOSE DECREASED
     Route: 040
     Dates: start: 20150210, end: 20150617
  13. IRINOTECAN (UNKNOWN) [Suspect]
     Active Substance: IRINOTECAN
     Dosage: 310 MG, CYCLICAL, DOSE DECREASED
     Route: 042
     Dates: start: 20150210, end: 20150617
  14. FLUOROURACIL. [Suspect]
     Active Substance: FLUOROURACIL
     Indication: ADENOCARCINOMA GASTRIC
     Dosage: 3000 MG, CYCLICAL
     Route: 041
     Dates: start: 20150210, end: 20150617
  15. CARDIOASPIRIN [Concomitant]
     Active Substance: ASPIRIN
     Indication: PRODUCT USED FOR UNKNOWN INDICATION
     Dosage: 1 DF, UNKNOWN
     Route: 048
  16. LEVOFOLINIC ACID [Concomitant]
     Active Substance: LEVOLEUCOVORIN
     Dosage: 340 MG, UNKNOWN, DOSE DECREASED
     Route: 042
     Dates: start: 20150210, end: 20150617

REACTIONS (5)
  - Neutropenia [Recovering/Resolving]
  - Constipation [Not Recovered/Not Resolved]
  - Anaemia [Not Recovered/Not Resolved]
  - Hypertransaminasaemia [Not Recovered/Not Resolved]
  - Oedema [Recovering/Resolving]

NARRATIVE: CASE EVENT DATE: 20150213
